FAERS Safety Report 16502376 (Version 1)
Quarter: 2019Q3

REPORT INFORMATION
  Report Type: Spontaneous
  Country: AU (occurrence: AU)
  Receive Date: 20190701
  Receipt Date: 20190701
  Transmission Date: 20191004
  Serious: Yes (Other)
  Sender: FDA-Public Use
  Company Number: AU-AMREGENT-20191364

PATIENT
  Age: 38 Year
  Sex: Female

DRUGS (1)
  1. FERINJECT [Suspect]
     Active Substance: FERRIC CARBOXYMALTOSE
     Dosage: UNKNOWN
     Route: 041

REACTIONS (6)
  - Influenza like illness [Unknown]
  - Fatigue [Unknown]
  - Emotional distress [Unknown]
  - Serum ferritin increased [Unknown]
  - Hypophosphataemia [Unknown]
  - Confusional state [Unknown]

NARRATIVE: CASE EVENT DATE: 20180907
